FAERS Safety Report 11920212 (Version 2)
Quarter: 2016Q1

REPORT INFORMATION
  Report Type: Spontaneous
  Country: US (occurrence: US)
  Receive Date: 20160115
  Receipt Date: 20160226
  Transmission Date: 20160526
  Serious: Yes (Other)
  Sender: FDA-Public Use
  Company Number: US-BAYER-2016-006755

PATIENT
  Age: 23 Year
  Sex: Female
  Weight: 82.86 kg

DRUGS (3)
  1. NOVOLOG [Concomitant]
     Active Substance: INSULIN ASPART
  2. MIRENA [Suspect]
     Active Substance: LEVONORGESTREL
     Indication: CONTRACEPTION
     Dosage: 20 MCG/24HR, CONT
     Route: 015
     Dates: start: 20151117, end: 20160107
  3. GYNE-LOTRIMIN [Concomitant]
     Active Substance: CLOTRIMAZOLE
     Route: 067

REACTIONS (1)
  - Device dislocation [Recovered/Resolved]
